FAERS Safety Report 9329550 (Version 1)
Quarter: 2013Q2

REPORT INFORMATION
  Report Type: Spontaneous
  Country: US (occurrence: US)
  Receive Date: 20130604
  Receipt Date: 20130604
  Transmission Date: 20140414
  Serious: No
  Sender: FDA-Public Use
  Company Number: US-SANOFI-AVENTIS-2012SA095752

PATIENT
  Age: 79 Year
  Sex: Female

DRUGS (2)
  1. SOLOSTAR [Suspect]
     Indication: TYPE 2 DIABETES MELLITUS
     Dosage: DOSE:30 UNIT(S)
  2. LANTUS SOLOSTAR [Suspect]
     Dosage: DOSE:30 UNIT(S)
     Dates: start: 201207

REACTIONS (2)
  - Blood glucose increased [Unknown]
  - Asthenia [Unknown]
